FAERS Safety Report 25386350 (Version 1)
Quarter: 2025Q2

REPORT INFORMATION
  Report Type: Spontaneous
  Country: US (occurrence: US)
  Receive Date: 20250602
  Receipt Date: 20250602
  Transmission Date: 20250717
  Serious: Yes (Other)
  Sender: AMGEN
  Company Number: US-AMGEN-USASP2025104712

PATIENT
  Age: 56 Year
  Sex: Female

DRUGS (34)
  1. OTEZLA [Suspect]
     Active Substance: APREMILAST
     Indication: Psoriasis
     Dosage: 30 MILLIGRAM, BID
     Route: 048
     Dates: start: 20250212
  2. OTEZLA [Suspect]
     Active Substance: APREMILAST
     Indication: Psoriatic arthropathy
  3. ENBREL [Suspect]
     Active Substance: ETANERCEPT
     Indication: Product used for unknown indication
     Route: 065
  4. PREDNISONE [Suspect]
     Active Substance: PREDNISONE
     Indication: Product used for unknown indication
     Route: 065
  5. ALBUTEROL [Concomitant]
     Active Substance: ALBUTEROL
  6. ARIPIPRAZOLE [Concomitant]
     Active Substance: ARIPIPRAZOLE
  7. AZITHROMYCIN [Concomitant]
     Active Substance: AZITHROMYCIN
  8. BENZONATATE [Concomitant]
     Active Substance: BENZONATATE
  9. BREYNA [Concomitant]
     Active Substance: BUDESONIDE\FORMOTEROL FUMARATE
  10. CETIRIZINE [Concomitant]
     Active Substance: CETIRIZINE HYDROCHLORIDE
  11. CLOPIDOGREL [Concomitant]
     Active Substance: CLOPIDOGREL BISULFATE
  12. DIPHENHYDRAMINE [Concomitant]
     Active Substance: DIPHENHYDRAMINE
  13. DULOXETINE [Concomitant]
     Active Substance: DULOXETINE
  14. FERROUS SULFATE [Concomitant]
     Active Substance: FERROUS SULFATE
  15. FLUOXETINE [Concomitant]
     Active Substance: FLUOXETINE HYDROCHLORIDE
  16. FLUTICASONE [Concomitant]
     Active Substance: FLUTICASONE
  17. FOLIC ACID [Concomitant]
     Active Substance: FOLIC ACID
  18. GABAPENTIN [Concomitant]
     Active Substance: GABAPENTIN
  19. GUAIFENESIN [Concomitant]
     Active Substance: GUAIFENESIN
  20. INCRUSE ELLIPTA [Concomitant]
     Active Substance: UMECLIDINIUM BROMIDE
  21. ALBUTEROL\IPRATROPIUM [Concomitant]
     Active Substance: ALBUTEROL\IPRATROPIUM
  22. LEVALBUTEROL [Concomitant]
     Active Substance: LEVALBUTEROL
  23. LIDOCAINE [Concomitant]
     Active Substance: LIDOCAINE
  24. LORAZEPAM [Concomitant]
     Active Substance: LORAZEPAM
  25. MONTELUKAST [Concomitant]
     Active Substance: MONTELUKAST
  26. NICOTINE [Concomitant]
     Active Substance: NICOTINE
  27. NICOTROL [Concomitant]
     Active Substance: NICOTINE
  28. NYSTATIN [Concomitant]
     Active Substance: NYSTATIN
  29. OMEPRAZOLE [Concomitant]
     Active Substance: OMEPRAZOLE
  30. OXYCODONE [Concomitant]
     Active Substance: OXYCODONE
  31. OZEMPIC [Concomitant]
     Active Substance: SEMAGLUTIDE
  32. PRAMIPEXOLE [Concomitant]
     Active Substance: PRAMIPEXOLE
  33. ROSUVASTATIN [Concomitant]
     Active Substance: ROSUVASTATIN
  34. TRAZODONE [Concomitant]
     Active Substance: TRAZODONE HYDROCHLORIDE

REACTIONS (3)
  - Psoriatic arthropathy [Not Recovered/Not Resolved]
  - Therapy interrupted [Not Recovered/Not Resolved]
  - Drug hypersensitivity [Unknown]

NARRATIVE: CASE EVENT DATE: 20250315
